FAERS Safety Report 6112161-7 (Version None)
Quarter: 2009Q1

REPORT INFORMATION
  Report Type: 
  Country: None (occurrence: None)
  Receive Date: 20090310
  Receipt Date: 20090227
  Transmission Date: 20090719
  Serious: Yes (Other)
  Sender: FDA-Public Use
  Company Number: CHPA2009US05902

PATIENT
  Age: 11 Year
  Sex: Female

DRUGS (1)
  1. THERAFLU DAYTIME SEVERE COLD [Suspect]
     Indication: INCORRECT DOSE ADMINISTERED
     Dosage: 130 ML, ONCE/SINGLE, ORAL
     Route: 048
     Dates: start: 20090227, end: 20090227

REACTIONS (4)
  - ACCIDENTAL DRUG INTAKE BY CHILD [None]
  - ACCIDENTAL OVERDOSE [None]
  - FEELING ABNORMAL [None]
  - SOMNOLENCE [None]
